FAERS Safety Report 7896099-0 (Version None)
Quarter: 2011Q4

REPORT INFORMATION
  Report Type: 
  Country: None (occurrence: None)
  Receive Date: 20111106
  Receipt Date: 20110906
  Transmission Date: 20120403
  Serious: Yes (Other)
  Sender: FDA-Public Use
  Company Number: US-AMGEN-USASP2011045632

PATIENT
  Age: 62 Year
  Sex: Female

DRUGS (2)
  1. ENBREL [Suspect]
     Indication: RHEUMATOID ARTHRITIS
     Dosage: 50 MG, QWK
     Dates: start: 20110731, end: 20110828
  2. METHOTREXATE [Concomitant]
     Dosage: 1 MG, QWK
     Dates: start: 20100101

REACTIONS (1)
  - OSTEOMYELITIS [None]
